FAERS Safety Report 19257736 (Version 8)
Quarter: 2022Q4

REPORT INFORMATION
  Report Type: Report from Study
  Country: AU (occurrence: AU)
  Receive Date: 20210514
  Receipt Date: 20221227
  Transmission Date: 20230113
  Serious: Yes (Hospitalization)
  Sender: FDA-Public Use
  Company Number: NVSC2021AU106100

PATIENT
  Age: 52 Year
  Sex: Male
  Weight: 108 kg

DRUGS (26)
  1. NAPORAFENIB [Suspect]
     Active Substance: NAPORAFENIB
     Indication: Malignant melanoma
     Dosage: 400 MG, QD
     Route: 048
     Dates: start: 20210421, end: 20210429
  2. NAPORAFENIB [Suspect]
     Active Substance: NAPORAFENIB
     Dosage: 200 MG, BID
     Route: 048
     Dates: start: 20210526
  3. TRAMETINIB [Suspect]
     Active Substance: TRAMETINIB
     Indication: Malignant melanoma
     Dosage: 1 MG, QD
     Route: 048
     Dates: start: 20210421, end: 20210429
  4. TRAMETINIB [Suspect]
     Active Substance: TRAMETINIB
     Dosage: 0.5 MG, QD
     Route: 048
     Dates: start: 20210526
  5. ASPIRIN [Concomitant]
     Active Substance: ASPIRIN
     Indication: Myocardial infarction
     Dosage: UNK
     Route: 065
     Dates: start: 20170417
  6. VENTOLIN [Concomitant]
     Active Substance: ALBUTEROL SULFATE
     Indication: Asthma
     Dosage: UNK
     Route: 065
     Dates: start: 1975
  7. VITAMIN C [Concomitant]
     Active Substance: ASCORBIC ACID
     Indication: General physical condition
     Dosage: UNK
     Route: 065
     Dates: start: 2020
  8. LOPERAMIDE [Concomitant]
     Active Substance: LOPERAMIDE
     Indication: Diarrhoea
     Dosage: UNK
     Route: 065
     Dates: start: 2020
  9. CLOPIDOGREL [Concomitant]
     Active Substance: CLOPIDOGREL BISULFATE
     Indication: Myocardial infarction
     Dosage: UNK
     Route: 065
     Dates: start: 20210414
  10. ACETAMINOPHEN [Concomitant]
     Active Substance: ACETAMINOPHEN
     Indication: Arthralgia
     Dosage: UNK
     Route: 065
     Dates: start: 20210424, end: 20210518
  11. ACETAMINOPHEN [Concomitant]
     Active Substance: ACETAMINOPHEN
     Indication: Headache
     Dosage: UNK
     Route: 065
     Dates: start: 20210612, end: 20210628
  12. METOCLOPRAMIDE [Concomitant]
     Active Substance: METOCLOPRAMIDE
     Indication: Vomiting
     Dosage: UNK
     Route: 065
     Dates: start: 20210429, end: 20210429
  13. METOCLOPRAMIDE [Concomitant]
     Active Substance: METOCLOPRAMIDE
     Indication: Nausea
  14. DOXYCYCLINE [Concomitant]
     Active Substance: DOXYCYCLINE
     Indication: Rash
     Dosage: UNK
     Route: 065
     Dates: start: 20210505, end: 20210524
  15. CLINDATECH [Concomitant]
     Indication: Rash
     Dosage: UNK
     Route: 065
     Dates: start: 20210505, end: 20210524
  16. PREDNISONE [Concomitant]
     Active Substance: PREDNISONE
     Indication: Arthralgia
     Dosage: UNK
     Route: 065
     Dates: start: 20210507, end: 20210515
  17. PREDNISONE [Concomitant]
     Active Substance: PREDNISONE
     Dosage: UNK
     Route: 065
     Dates: start: 20210516, end: 20210518
  18. IRBESARTAN [Concomitant]
     Active Substance: IRBESARTAN
     Indication: Myocardial infarction
     Dosage: UNK
     Route: 065
     Dates: start: 20210417
  19. DULOXETINE [Concomitant]
     Active Substance: DULOXETINE
     Indication: Depression
     Dosage: UNK
     Route: 065
  20. INSULIN ASPART [Concomitant]
     Active Substance: INSULIN ASPART
     Indication: Type 2 diabetes mellitus
     Dosage: UNK
     Route: 065
     Dates: start: 20200825
  21. ISOPHANE INSULIN [Concomitant]
     Active Substance: INSULIN NOS
     Indication: Type 2 diabetes mellitus
     Dosage: UNK
     Route: 065
     Dates: start: 20200825
  22. METFORMIN [Concomitant]
     Active Substance: METFORMIN HYDROCHLORIDE
     Indication: Type 2 diabetes mellitus
     Dosage: UNK
     Route: 065
     Dates: start: 20210116
  23. ROSUVASTATIN [Concomitant]
     Active Substance: ROSUVASTATIN
     Indication: Prophylaxis
     Dosage: UNK
     Route: 065
     Dates: start: 20200825
  24. BISOPROLOL [Concomitant]
     Active Substance: BISOPROLOL
     Indication: Hypertension
     Dosage: UNK
     Route: 065
     Dates: start: 2017
  25. CELECOXIB [Concomitant]
     Active Substance: CELECOXIB
     Indication: Arthralgia
     Dosage: UNK
     Route: 065
     Dates: start: 2020, end: 20210514
  26. MORPHINE SULFATE [Concomitant]
     Active Substance: MORPHINE SULFATE
     Indication: Arthralgia
     Dosage: UNK
     Route: 065
     Dates: start: 20210419, end: 20210512

REACTIONS (3)
  - Arthralgia [Recovering/Resolving]
  - Myalgia [Recovered/Resolved]
  - Depression [Recovered/Resolved]

NARRATIVE: CASE EVENT DATE: 20210510
